FAERS Safety Report 9550772 (Version 1)
Quarter: 2013Q3

REPORT INFORMATION
  Report Type: Spontaneous
  Country: US (occurrence: US)
  Receive Date: 20130924
  Receipt Date: 20130924
  Transmission Date: 20140515
  Serious: No
  Sender: FDA-Public Use
  Company Number: US-SANOFI-AVENTIS-2013SA047925

PATIENT
  Age: 62 Year
  Sex: Female
  Weight: 93 kg

DRUGS (27)
  1. AUBAGIO [Suspect]
     Indication: MULTIPLE SCLEROSIS
     Route: 048
     Dates: start: 20130501
  2. METOPROLOL [Concomitant]
  3. AMINOPYRIDINE [Concomitant]
     Dosage: 5MG CAPSULES, 1/MORNING, 2/NOON
  4. ALENDRONATE [Concomitant]
     Dosage: 1/WEEK, SUNDAY BEFORE BREAKFAST
  5. ASPIRIN [Concomitant]
     Dosage: I/DAY, EVENING
  6. BACLOFEN [Concomitant]
     Dosage: 9/DAY, FOR MULTIPLE SCLEROSIS, 3/MORNING, 3/LUNCH, 3/DINNER
  7. BETAMETHASONE/CLOTRIMAZOLE [Concomitant]
     Dosage: APPLY TWICE A DAY
  8. DEXTROAMPHETAMINE [Concomitant]
  9. FLONASE [Concomitant]
     Dosage: I SPRAY IN EACH NOSTRIL, 1/DAY
  10. GABAPENTIN [Concomitant]
  11. HYDROCODONE BITARTRATE/PARACETAMOL [Concomitant]
     Dosage: 1-2 TABLETS EVERY 4 HOURS AS NEEDED
  12. LANSOPRAZOLE [Concomitant]
  13. LEVOTHYROXINE [Concomitant]
  14. METROGEL [Concomitant]
     Dosage: APPLY 2/DAY, MORNING + BEDTIME
  15. PREDNISONE [Concomitant]
     Dosage: 1/DAY, ALTERNATE 5MG WITH 2.5MG, MORNING, AFTER BREAKFAST
  16. ZOLOFT [Concomitant]
  17. UNKNOWDRUG [Concomitant]
  18. OXYCODONE [Concomitant]
     Dosage: EVERY 4-6 HOURS AS NEEDED
  19. VANCOMYCIN [Concomitant]
     Dosage: 3/DAY WHEN ON ANTIBIOTICS
  20. MULTIVITAMINS [Concomitant]
     Dosage: 1/DAY, MORNING
  21. BEANO [Concomitant]
     Dosage: 2 BEFORE MEALS
  22. CALCIUM/VITAMIN D [Concomitant]
  23. FLAXSEED OIL [Concomitant]
     Dosage: 1,000MG CAPSULE, 2/DAY, 1 AFTER BREAKFAST, 1 AFTER DINNER
  24. VITAMIN B6 [Concomitant]
  25. VITAMIN C [Concomitant]
  26. VITAMIN D [Concomitant]
  27. VITAMIN E [Concomitant]

REACTIONS (5)
  - Rash [Recovered/Resolved]
  - Swelling [Not Recovered/Not Resolved]
  - Pruritus [Unknown]
  - Urinary tract infection [Not Recovered/Not Resolved]
  - Hypertension [Not Recovered/Not Resolved]
